FAERS Safety Report 12738375 (Version 1)
Quarter: 2016Q3

REPORT INFORMATION
  Report Type: Spontaneous
  Country: US (occurrence: US)
  Receive Date: 20160909
  Receipt Date: 20160909
  Transmission Date: 20161109
  Serious: Yes (Hospitalization)
  Sender: FDA-Public Use
  Company Number: None

PATIENT
  Age: 64 Year
  Sex: Male
  Weight: 84 kg

DRUGS (3)
  1. METFORMIN HYDROCHLORIDE. [Suspect]
     Active Substance: METFORMIN HYDROCHLORIDE
     Dates: end: 20160820
  2. CARBOPLATIN. [Suspect]
     Active Substance: CARBOPLATIN
     Dates: end: 20160815
  3. TAXOL [Suspect]
     Active Substance: PACLITAXEL
     Dates: end: 20160815

REACTIONS (4)
  - Aphasia [None]
  - Cerebrovascular accident [None]
  - Mental status changes [None]
  - Facial paresis [None]

NARRATIVE: CASE EVENT DATE: 20160820
